FAERS Safety Report 9436608 (Version 1)
Quarter: 2013Q3

REPORT INFORMATION
  Report Type: Spontaneous
  Country: None (occurrence: US)
  Receive Date: 20130802
  Receipt Date: 20130802
  Transmission Date: 20140515
  Serious: Yes (Death, Hospitalization, Other)
  Sender: FDA-Public Use
  Company Number: US-ROCHE-1256106

PATIENT
  Age: 67 Year
  Sex: Female

DRUGS (1)
  1. TAMIFLU [Suspect]
     Indication: H1N1 INFLUENZA
     Route: 065

REACTIONS (4)
  - Septic shock [Fatal]
  - Respiratory failure [Fatal]
  - Pathogen resistance [Unknown]
  - Drug ineffective [Unknown]
